FAERS Safety Report 8408171-7 (Version None)
Quarter: 2012Q2

REPORT INFORMATION
  Report Type: 
  Country: None (occurrence: None)
  Receive Date: 20120604
  Receipt Date: 20120529
  Transmission Date: 20120825
  Serious: Yes (Death)
  Sender: FDA-Public Use
  Company Number: PHHY2012CN046869

PATIENT

DRUGS (5)
  1. MYCOPHENOLATE MOFETIL [Concomitant]
     Indication: PROPHYLAXIS AGAINST GRAFT VERSUS HOST DISEASE
     Dosage: 0.5 G, Q12H
     Route: 048
  2. MYCOPHENOLATE MOFETIL [Concomitant]
     Dosage: 0.25 G, UNK
  3. CYCLOSPORINE [Suspect]
     Dosage: UNK UKN, UNK
     Route: 048
  4. CYCLOSPORINE [Suspect]
     Indication: PROPHYLAXIS AGAINST GRAFT VERSUS HOST DISEASE
     Dosage: 2.5 MG/KG,DAILY
     Route: 042
  5. METHOTREXATE [Concomitant]
     Indication: PROPHYLAXIS AGAINST GRAFT VERSUS HOST DISEASE
     Dosage: 15 MG/M2, UNK
     Route: 042

REACTIONS (1)
  - CHRONIC GRAFT VERSUS HOST DISEASE [None]
